FAERS Safety Report 4371697-X (Version None)
Quarter: 2004Q2

REPORT INFORMATION
  Report Type: 
  Country: None (occurrence: None)
  Receive Date: 20040526
  Receipt Date: 20040514
  Transmission Date: 20050107
  Serious: Yes (Other)
  Sender: FDA-Public Use
  Company Number: 200403797

PATIENT
  Age: 1 Year
  Sex: Female
  Weight: 11.3399 kg

DRUGS (2)
  1. CHILDREN'S MOTRIN [Suspect]
     Indication: PYREXIA
     Dosage: ^AS PER BOTTLE LABEL^, Q8H
     Dates: start: 20040301, end: 20040402
  2. TYLENOL [Concomitant]

REACTIONS (2)
  - BODY TEMPERATURE DECREASED [None]
  - PERIPHERAL COLDNESS [None]
